FAERS Safety Report 25073171 (Version 3)
Quarter: 2025Q1

REPORT INFORMATION
  Report Type: Spontaneous
  Country: JP (occurrence: JP)
  Receive Date: 20250313
  Receipt Date: 20250322
  Transmission Date: 20250408
  Serious: Yes (Death)
  Sender: ROCHE
  Company Number: JP-ROCHE-10000229016

PATIENT
  Age: 64 Year
  Sex: Female

DRUGS (2)
  1. RITUXIMAB [Suspect]
     Active Substance: RITUXIMAB
     Indication: Nephrotic syndrome
     Route: 042
  2. PREDNISOLONE [Suspect]
     Active Substance: PREDNISOLONE
     Indication: Nephrotic syndrome
     Route: 065

REACTIONS (3)
  - Pneumocystis jirovecii infection [Fatal]
  - Cytomegalovirus infection [Fatal]
  - Diffuse alveolar damage [Fatal]
